FAERS Safety Report 6123754-5 (Version None)
Quarter: 2009Q1

REPORT INFORMATION
  Report Type: 
  Country: None (occurrence: None)
  Receive Date: 20090318
  Receipt Date: 20090318
  Transmission Date: 20090719
  Serious: Yes (Hospitalization)
  Sender: FDA-Public Use
  Company Number: None

PATIENT
  Sex: Female
  Weight: 63 kg

DRUGS (2)
  1. CARBOPLATIN [Suspect]
     Dosage: 375 MG
     Dates: end: 20081020
  2. TAXOL [Suspect]
     Dosage: 313 MG
     Dates: end: 20081020

REACTIONS (2)
  - NAUSEA [None]
  - NEUTROPENIA [None]
